FAERS Safety Report 7849337-4 (Version None)
Quarter: 2011Q4

REPORT INFORMATION
  Report Type: 
  Country: None (occurrence: None)
  Receive Date: 20111021
  Receipt Date: 20111010
  Transmission Date: 20120403
  Serious: Yes (Hospitalization)
  Sender: FDA-Public Use
  Company Number: 2011HGS-002626

PATIENT
  Age: 49 Year
  Sex: Female
  Weight: 87.9978 kg

DRUGS (13)
  1. PREDNISONE [Concomitant]
  2. BENLYSTA [Suspect]
     Indication: SYSTEMIC LUPUS ERYTHEMATOSUS
     Dosage: 1 IN 2 WK, INTRAVENOUS DRIP
     Route: 041
     Dates: start: 20110826, end: 20110826
  3. PLAQUENIL (HYDROXYCHLOROQUINE SULFATE)(HYDROXYCHLOROQUINE SULFATE) [Concomitant]
  4. FOLIC ACID [Concomitant]
  5. B12 (CYANOCOBALAMIN) (CYANOCOBALAMIN) [Concomitant]
  6. BIOTIN (BIOTIN) (BIOTIN) [Concomitant]
  7. METOPROLOL SUCCINATE [Concomitant]
  8. VITAMIN E (TOCOPHEROL)(TOCOPHEROL) [Concomitant]
  9. ALDACTONE [Concomitant]
  10. VITAMIN B COMPLEX(B-KOMPLEX ^LECIVA^)(PYRIDOXINE HYDROCHLORIDE, THIAMI [Concomitant]
  11. NEURONTIN [Concomitant]
  12. CITRACAL PLUS VITAMIN D (CITRACAL + D)(ERGOCALCIFEROL, CALCIUM CITRATE [Concomitant]
  13. IMITREX (SUMATRIPTAN SUCCINATE)(SUMATRIPTAN SUCCINATE) [Concomitant]

REACTIONS (3)
  - IMPAIRED GASTRIC EMPTYING [None]
  - DYSPEPSIA [None]
  - GASTROINTESTINAL DISORDER [None]
